FAERS Safety Report 15110946 (Version 1)
Quarter: 2018Q3

REPORT INFORMATION
  Report Type: Report from Study
  Country: CA (occurrence: CA)
  Receive Date: 20180705
  Receipt Date: 20180705
  Transmission Date: 20181010
  Serious: Yes (Other)
  Sender: FDA-Public Use
  Company Number: CA-JNJFOC-20180703662

PATIENT
  Sex: Female
  Weight: 92 kg

DRUGS (1)
  1. REMICADE [Suspect]
     Active Substance: INFLIXIMAB
     Indication: CROHN^S DISEASE
     Dosage: STRENGTH = 400 MG
     Route: 042
     Dates: start: 20161110

REACTIONS (1)
  - Basal cell carcinoma [Unknown]
